FAERS Safety Report 17191349 (Version 1)
Quarter: 2019Q4

REPORT INFORMATION
  Report Type: Spontaneous
  Country: US (occurrence: US)
  Receive Date: 20191221
  Receipt Date: 20191221
  Transmission Date: 20200122
  Serious: No
  Sender: FDA-Public Use
  Company Number: None

PATIENT
  Age: 56 Year
  Sex: Female
  Weight: 81.9 kg

DRUGS (10)
  1. CVS DRY EYE RELIEF LUBRICANT EYE DROPS [Suspect]
     Active Substance: GLYCERIN\HYPROMELLOSES\POLYETHYLENE GLYCOL 400
     Indication: OCULAR HYPERAEMIA
     Route: 047
  2. VITAMIN E [Concomitant]
     Active Substance: .ALPHA.-TOCOPHEROL
  3. SLEEP AID REGULAR STRENGTH [Concomitant]
     Active Substance: DIPHENHYDRAMINE HYDROCHLORIDE
  4. VITAMIN B12 [Concomitant]
     Active Substance: CYANOCOBALAMIN
  5. CVS DRY EYE RELIEF LUBRICANT EYE DROPS [Suspect]
     Active Substance: GLYCERIN\HYPROMELLOSES\POLYETHYLENE GLYCOL 400
     Indication: DRY EYE
     Route: 047
  6. CVS HEALTH LUBRICANT GEL DROPS [CARBOXYMETHYLCELLULOSE SODIUM\HYPROMELLOSES] [Suspect]
     Active Substance: CARBOXYMETHYLCELLULOSE SODIUM\HYPROMELLOSES
     Indication: DRY EYE
     Route: 047
  7. CVS HEALTH LUBRICANT GEL DROPS [CARBOXYMETHYLCELLULOSE SODIUM\HYPROMELLOSES] [Suspect]
     Active Substance: CARBOXYMETHYLCELLULOSE SODIUM\HYPROMELLOSES
     Indication: OCULAR HYPERAEMIA
     Route: 047
  8. SLEEP MACHINE [Concomitant]
  9. MILD DIURETIC [Concomitant]
  10. LIQUID MULTI VITAMINS [Concomitant]

REACTIONS (2)
  - Foreign body sensation in eyes [None]
  - Recalled product administered [None]

NARRATIVE: CASE EVENT DATE: 20190531
